FAERS Safety Report 16504400 (Version 2)
Quarter: 2019Q3

REPORT INFORMATION
  Report Type: Spontaneous
  Country: US (occurrence: US)
  Receive Date: 20190701
  Receipt Date: 20190723
  Transmission Date: 20191004
  Serious: No
  Sender: FDA-Public Use
  Company Number: US-PFIZER INC-2019273454

PATIENT
  Sex: Male
  Weight: 94.97 kg

DRUGS (2)
  1. GABAPENTIN. [Suspect]
     Active Substance: GABAPENTIN
     Indication: NEUROPATHY PERIPHERAL
     Dosage: 300 MG, 3X/DAY
     Route: 048
     Dates: start: 20160711, end: 20160908
  2. GABAPENTIN. [Suspect]
     Active Substance: GABAPENTIN
     Indication: AUTONOMIC NEUROPATHY

REACTIONS (1)
  - Drug ineffective [Unknown]
